FAERS Safety Report 19948815 (Version 1)
Quarter: 2021Q4

REPORT INFORMATION
  Report Type: Report from Study
  Country: BR (occurrence: BR)
  Receive Date: 20211013
  Receipt Date: 20211013
  Transmission Date: 20220303
  Serious: Yes (Other)
  Sender: FDA-Public Use
  Company Number: BR-NOVARTISPH-NVSC2021BR218478

PATIENT
  Age: 79 Year
  Sex: Female
  Weight: 61 kg

DRUGS (4)
  1. BROLUCIZUMAB [Suspect]
     Active Substance: BROLUCIZUMAB
     Indication: Age-related macular degeneration
     Dosage: UNK UNK, QMO (01 AMPOULE)
     Route: 031
     Dates: start: 20210915
  2. LEVOTHYROXINE [Concomitant]
     Active Substance: LEVOTHYROXINE
     Indication: Product used for unknown indication
     Dosage: 50 MG(1 TABLET, MORNING)(STARTED 40 YEARS AGO)
     Route: 048
  3. SIMVASTATIN [Concomitant]
     Active Substance: SIMVASTATIN
     Indication: Product used for unknown indication
     Dosage: 1 DF (AFTER DINNER) STARTED FOR MANY YEARS
     Route: 048
  4. AMITRIL [Concomitant]
     Active Substance: AMITRIPTYLINE HYDROCHLORIDE
     Indication: Somnolence
     Dosage: 50 MG (? TABLET)BEFORE SLEEP, STARTED FOR MANY YEARS AGO
     Route: 048

REACTIONS (6)
  - Visual impairment [Not Recovered/Not Resolved]
  - Swelling of eyelid [Unknown]
  - Ocular hyperaemia [Recovering/Resolving]
  - Vision blurred [Not Recovered/Not Resolved]
  - Eye pruritus [Recovering/Resolving]
  - Drug ineffective [Not Recovered/Not Resolved]

NARRATIVE: CASE EVENT DATE: 20210901
